FAERS Safety Report 5963794-X (Version None)
Quarter: 2008Q4

REPORT INFORMATION
  Report Type: 
  Country: None (occurrence: None)
  Receive Date: 20081121
  Receipt Date: 20081121
  Transmission Date: 20090506
  Serious: Yes (Disabling)
  Sender: FDA-Public Use
  Company Number: None

PATIENT
  Age: 59 Year
  Sex: Male
  Weight: 87 kg

DRUGS (14)
  1. INSULIN ASPART HIGH SLIDING SCALE + PRONDIAL [Suspect]
     Indication: DIABETES MELLITUS
     Dosage: 10U 3X/D PRANDIAL
  2. INSULIN GLARGINE [Suspect]
     Dosage: GLARGINE: 40U AM, 30U PM
  3. WARFARIN SODIUM [Concomitant]
  4. ALLOPURINOL [Concomitant]
  5. AMIODARONE HCL [Concomitant]
  6. ASPIRIN [Concomitant]
  7. FLUOXETINE [Concomitant]
  8. FOLIC ACID [Concomitant]
  9. GABAPENTIN [Concomitant]
  10. LANTHANUM CARBONATE [Concomitant]
  11. NEPHROCAP [Concomitant]
  12. ZANTAC [Concomitant]
  13. TAMSULOSIN HCL [Concomitant]
  14. TAZODONE [Concomitant]

REACTIONS (3)
  - DEPRESSED LEVEL OF CONSCIOUSNESS [None]
  - HYPOGLYCAEMIA [None]
  - LETHARGY [None]
